FAERS Safety Report 19806093 (Version 4)
Quarter: 2023Q2

REPORT INFORMATION
  Report Type: Spontaneous
  Country: CA (occurrence: CA)
  Receive Date: 20210908
  Receipt Date: 20230630
  Transmission Date: 20230722
  Serious: Yes (Other)
  Sender: FDA-Public Use
  Company Number: CA-SAMSUNG BIOEPIS-SB-2021-21230

PATIENT
  Age: 38 Year
  Sex: Female
  Weight: 98 kg

DRUGS (4)
  1. INFLIXIMAB [Suspect]
     Active Substance: INFLIXIMAB
     Indication: Crohn^s disease
     Route: 042
  2. INFLIXIMAB [Suspect]
     Active Substance: INFLIXIMAB
     Route: 042
  3. HYDROXYCHLOROQUINE [Concomitant]
     Active Substance: HYDROXYCHLOROQUINE
     Indication: Product used for unknown indication
     Dosage: UNKNOWN
     Route: 065
  4. METHOTREXATE [Concomitant]
     Active Substance: METHOTREXATE
     Indication: Product used for unknown indication
     Route: 048

REACTIONS (9)
  - Nephrolithiasis [Recovered/Resolved]
  - Poor venous access [Recovered/Resolved]
  - Fatigue [Recovered/Resolved]
  - Pruritus [Recovered/Resolved]
  - Rash [Recovered/Resolved]
  - Weight decreased [Recovered/Resolved]
  - Abdominal pain [Recovered/Resolved]
  - Intentional product use issue [Recovered/Resolved]
  - Off label use [Recovered/Resolved]
